FAERS Safety Report 11777330 (Version 1)
Quarter: 2015Q4

REPORT INFORMATION
  Report Type: Spontaneous
  Country: US (occurrence: None)
  Receive Date: 20151124
  Receipt Date: 20151124
  Transmission Date: 20160304
  Serious: No
  Sender: FDA-Public Use
  Company Number: None

PATIENT
  Age: 43 Year
  Sex: Female
  Weight: 76.2 kg

DRUGS (5)
  1. AZITHROMYCIN [Suspect]
     Active Substance: AZITHROMYCIN ANHYDROUS
     Indication: SINUSITIS
     Dosage: 2 TABS DAY 1, 1 TAB DAILY
     Route: 048
     Dates: start: 20070428
  2. TYLENOL [Concomitant]
     Active Substance: ACETAMINOPHEN
  3. METOPROLOL SUCCINATE. [Concomitant]
     Active Substance: METOPROLOL SUCCINATE
  4. NASONEX [Concomitant]
     Active Substance: MOMETASONE FUROATE
  5. ZYRTEC [Concomitant]
     Active Substance: CETIRIZINE HYDROCHLORIDE

REACTIONS (1)
  - Urticaria [None]

NARRATIVE: CASE EVENT DATE: 20070428
